FAERS Safety Report 7179369-3 (Version None)
Quarter: 2010Q4

REPORT INFORMATION
  Report Type: 
  Country: None (occurrence: None)
  Receive Date: 20101221
  Receipt Date: 20101216
  Transmission Date: 20110411
  Serious: Yes (Death)
  Sender: FDA-Public Use
  Company Number: DE-JNJFOC-20101102122

PATIENT
  Age: 84 Year
  Sex: Female

DRUGS (4)
  1. REOPRO [Suspect]
     Indication: ACUTE MYOCARDIAL INFARCTION
     Route: 042
  2. REOPRO [Suspect]
     Route: 042
  3. ACETYLSALICYLIC ACID [Concomitant]
  4. HEPARIN [Concomitant]

REACTIONS (2)
  - CARDIOGENIC SHOCK [None]
  - CORONARY ARTERY THROMBOSIS [None]
